FAERS Safety Report 9805297 (Version 1)
Quarter: 2014Q1

REPORT INFORMATION
  Report Type: Spontaneous
  Country: MY (occurrence: None)
  Receive Date: 20140106
  Receipt Date: 20140106
  Transmission Date: 20141002
  Serious: Yes (Other)
  Sender: FDA-Public Use
  Company Number: 2013-MY-005029

PATIENT
  Age: 9 Year
  Sex: Male

DRUGS (3)
  1. ERWINASE [Suspect]
     Indication: ACUTE LYMPHOCYTIC LEUKAEMIA
     Dosage: 20 KU
     Route: 042
     Dates: start: 20121201
  2. GRANISETRON (GRANISETRON) [Concomitant]
  3. CEFUROXIME (CEFUROXIME) [Concomitant]

REACTIONS (1)
  - Urticaria [None]
